FAERS Safety Report 24109887 (Version 1)
Quarter: 2024Q3

REPORT INFORMATION
  Report Type: Spontaneous
  Country: GB (occurrence: GB)
  Receive Date: 20240718
  Receipt Date: 20240718
  Transmission Date: 20241016
  Serious: Yes (Death, Life-Threatening, Other)
  Sender: SANOFI AVENTIS
  Company Number: None

PATIENT
  Age: 53 Year
  Sex: Male

DRUGS (9)
  1. RIFAMPIN [Interacting]
     Active Substance: RIFAMPIN
     Indication: Mycobacterium avium complex infection
     Dosage: UNK
  2. RIFAMPIN [Interacting]
     Active Substance: RIFAMPIN
     Indication: Bronchopulmonary aspergillosis
  3. VORICONAZOLE [Interacting]
     Active Substance: VORICONAZOLE
     Indication: Mycobacterium avium complex infection
     Dosage: UNK
  4. VORICONAZOLE [Interacting]
     Active Substance: VORICONAZOLE
     Indication: Bronchopulmonary aspergillosis
  5. POSACONAZOLE [Interacting]
     Active Substance: POSACONAZOLE
     Indication: Mycobacterium avium complex infection
     Dosage: UNK
  6. POSACONAZOLE [Interacting]
     Active Substance: POSACONAZOLE
     Indication: Bronchopulmonary aspergillosis
  7. AMBISOME [Interacting]
     Active Substance: AMPHOTERICIN B
     Indication: Mycobacterium avium complex infection
     Dosage: UNK
  8. RIFABUTIN [Interacting]
     Active Substance: RIFABUTIN
     Indication: Mycobacterium avium complex infection
     Dosage: UNK
  9. RIFABUTIN [Interacting]
     Active Substance: RIFABUTIN
     Indication: Bronchopulmonary aspergillosis

REACTIONS (6)
  - Bronchopulmonary aspergillosis [Fatal]
  - Mycobacterium avium complex infection [Fatal]
  - Deafness [Unknown]
  - Drug ineffective [Unknown]
  - Drug interaction [Unknown]
  - Drug resistance [Unknown]
